FAERS Safety Report 6918521-6 (Version None)
Quarter: 2010Q3

REPORT INFORMATION
  Report Type: 
  Country: None (occurrence: None)
  Receive Date: 20100811
  Receipt Date: 20100729
  Transmission Date: 20110219
  Serious: No
  Sender: FDA-Public Use
  Company Number: US-B.I. PHARMACEUTICALS,INC./RIDGEFIELD-2010-BP-08686BP

PATIENT
  Sex: Female

DRUGS (2)
  1. SPIRIVA [Suspect]
     Indication: COUGH
     Route: 055
     Dates: start: 20100709, end: 20100726
  2. SPIRIVA [Suspect]
     Indication: DYSPNOEA

REACTIONS (4)
  - DRUG INEFFECTIVE [None]
  - GLOSSODYNIA [None]
  - OROPHARYNGEAL PAIN [None]
  - PAIN [None]
